FAERS Safety Report 20461633 (Version 1)
Quarter: 2022Q1

REPORT INFORMATION
  Report Type: Other
  Country: None (occurrence: TW)
  Receive Date: 20220211
  Receipt Date: 20220211
  Transmission Date: 20220423
  Serious: Yes (Hospitalization)
  Sender: FDA-Public Use
  Company Number: TW-B.Braun Medical Inc.-2125800

PATIENT
  Age: 79 Year
  Sex: Female

DRUGS (1)
  1. CEFEPIME HYDROCHLORIDE AND DEXTROSE [Suspect]
     Active Substance: CEFEPIME HYDROCHLORIDE

REACTIONS (3)
  - Depression [Recovered/Resolved]
  - Dysarthria [Recovered/Resolved]
  - Decreased appetite [Recovered/Resolved]
